FAERS Safety Report 6912645-5 (Version None)
Quarter: 2010Q3

REPORT INFORMATION
  Report Type: 
  Country: None (occurrence: None)
  Receive Date: 20100806
  Receipt Date: 20080912
  Transmission Date: 20110219
  Serious: No
  Sender: FDA-Public Use
  Company Number: US-PFIZER INC-2008077070

PATIENT
  Age: 7 Year
  Sex: Female

DRUGS (2)
  1. DETROL LA [Suspect]
  2. MIRALAX [Concomitant]

REACTIONS (1)
  - DYSPHAGIA [None]
